FAERS Safety Report 15489976 (Version 3)
Quarter: 2018Q4

REPORT INFORMATION
  Report Type: Report from Study
  Country: US (occurrence: US)
  Receive Date: 20181011
  Receipt Date: 20181116
  Transmission Date: 20190205
  Serious: Yes (Hospitalization)
  Sender: FDA-Public Use
  Company Number: US-EXELIXIS-CABO-18016246

PATIENT
  Age: 43 Year
  Sex: Female

DRUGS (2)
  1. COMETRIQ [Suspect]
     Active Substance: CABOZANTINIB S-MALATE
     Dosage: 140 MG, QD
     Route: 048
     Dates: start: 20181001
  2. COMETRIQ [Suspect]
     Active Substance: CABOZANTINIB S-MALATE
     Indication: THYROID CANCER
     Dosage: 140 MG, QD
     Route: 048
     Dates: start: 20180807, end: 201809

REACTIONS (7)
  - Malnutrition [Unknown]
  - Blood electrolytes abnormal [Unknown]
  - Wrong technique in product usage process [Unknown]
  - Blood calcium abnormal [Unknown]
  - Fluid imbalance [Unknown]
  - Aspiration [Unknown]
  - Complication associated with device [Unknown]

NARRATIVE: CASE EVENT DATE: 201810
